FAERS Safety Report 4561177-0 (Version None)
Quarter: 2005Q1

REPORT INFORMATION
  Report Type: 
  Country: None (occurrence: None)
  Receive Date: 20050126
  Receipt Date: 20050120
  Transmission Date: 20050727
  Serious: Yes (Hospitalization)
  Sender: FDA-Public Use
  Company Number: 200510548GDDC

PATIENT
  Age: 52 Year
  Sex: Male

DRUGS (6)
  1. MINIRIN [Suspect]
     Indication: DIABETES INSIPIDUS
     Route: 045
     Dates: start: 19840101, end: 20041114
  2. LEGALON [Suspect]
     Route: 048
     Dates: end: 20041114
  3. LIPANTHYL [Suspect]
     Dosage: DOSE: UNK
     Route: 048
     Dates: end: 20041107
  4. LEVOTHYROXINE SODIUM [Suspect]
     Indication: HYPOTHYROIDISM
     Route: 048
     Dates: start: 19930101
  5. XATRAL [Suspect]
     Indication: PROSTATIC ADENOMA
     Dosage: DOSE: UNK
     Route: 048
  6. NSAID'S [Concomitant]

REACTIONS (5)
  - BLOOD CHLORIDE DECREASED [None]
  - DRY MOUTH [None]
  - HYPONATRAEMIA [None]
  - OVERDOSE [None]
  - RHABDOMYOLYSIS [None]
